FAERS Safety Report 6317056-1 (Version None)
Quarter: 2009Q3

REPORT INFORMATION
  Report Type: 
  Country: None (occurrence: None)
  Receive Date: 20090820
  Receipt Date: 20090708
  Transmission Date: 20100115
  Serious: Yes (Death)
  Sender: FDA-Public Use
  Company Number: FR-PFIZER INC-2009237421

PATIENT
  Age: 77 Year

DRUGS (9)
  1. PHENYTOIN AND PHENYTOIN SODIUM [Suspect]
     Dosage: 20 MG/KG, SINGLE
     Route: 042
     Dates: start: 20090415
  2. CORDARONE [Concomitant]
     Dosage: 200 MG, 1X/DAY
     Route: 048
  3. DILATRANE [Concomitant]
     Dosage: 300 MG, 2X/DAY
  4. SYMBICORT [Concomitant]
     Dosage: 2 DF, 1X/DAY
  5. ZADITEN [Concomitant]
     Dosage: 2 MG, 1X/DAY
  6. COVERSYL [Concomitant]
     Dosage: 4 MG, 1X/DAY
  7. PREVISCAN [Concomitant]
  8. LYRICA [Concomitant]
     Indication: PAIN
     Dosage: 50 MG, 2X/DAY
     Dates: start: 20090301
  9. LAROXYL [Concomitant]
     Indication: PAIN
     Dosage: 5 DF, 1X/DAY
     Dates: start: 20090301

REACTIONS (3)
  - CARDIAC ARREST [None]
  - CARDIO-RESPIRATORY ARREST [None]
  - SHOCK [None]
